FAERS Safety Report 20338236 (Version 1)
Quarter: 2022Q1

REPORT INFORMATION
  Report Type: Spontaneous
  Country: GB (occurrence: GB)
  Receive Date: 20220115
  Receipt Date: 20220115
  Transmission Date: 20220423
  Serious: Yes (Other)
  Sender: FDA-Public Use
  Company Number: GB-MACLEODS PHARMACEUTICALS US LTD-MAC2021033955

PATIENT

DRUGS (2)
  1. IBANDRONATE SODIUM [Suspect]
     Active Substance: IBANDRONATE SODIUM
     Indication: Metastases to bone
     Dosage: UNK; INFUSIONS
     Route: 042
  2. DENOSUMAB [Suspect]
     Active Substance: DENOSUMAB
     Indication: Metastases to bone
     Dosage: UNK, INJECTIONS FOR MORE THAN 2 YEARS
     Route: 065

REACTIONS (3)
  - Abscess jaw [Recovered/Resolved]
  - Actinomycosis [Recovered/Resolved]
  - Osteonecrosis of jaw [Unknown]
